FAERS Safety Report 6842925-3 (Version None)
Quarter: 2010Q3

REPORT INFORMATION
  Report Type: 
  Country: None (occurrence: None)
  Receive Date: 20100714
  Receipt Date: 20070820
  Transmission Date: 20110219
  Serious: No
  Sender: FDA-Public Use
  Company Number: US-PFIZER INC-2007066697

PATIENT
  Sex: Female
  Weight: 133.4 kg

DRUGS (6)
  1. CHANTIX [Suspect]
     Indication: SMOKING CESSATION THERAPY
     Dates: start: 20070501
  2. TOPROL-XL [Concomitant]
  3. LASIX [Concomitant]
  4. POTASSIUM CHLORIDE [Concomitant]
  5. ANALGESICS [Concomitant]
  6. VITAMINS [Concomitant]

REACTIONS (2)
  - INCORRECT DOSE ADMINISTERED [None]
  - SLEEP DISORDER [None]
